FAERS Safety Report 9544026 (Version 2)
Quarter: 2013Q3

REPORT INFORMATION
  Report Type: Spontaneous
  Country: IT (occurrence: IT)
  Receive Date: 20130923
  Receipt Date: 20130923
  Transmission Date: 20140515
  Serious: Yes (Life-Threatening)
  Sender: FDA-Public Use
  Company Number: IT-MERCK-1212ITA001434

PATIENT
  Age: 52 Year
  Sex: Male

DRUGS (2)
  1. TRIMETON [Suspect]
     Dosage: 10 MG/1ML, TOTAL
     Route: 030
     Dates: start: 20120917, end: 20120917
  2. BENTELAN [Concomitant]
     Dosage: UNK
     Route: 042
     Dates: start: 20120917, end: 20120917

REACTIONS (6)
  - Arrhythmia [Recovered/Resolved]
  - Electrocardiogram QT prolonged [Recovered/Resolved]
  - Nodal arrhythmia [Recovered/Resolved]
  - Presyncope [Recovered/Resolved]
  - Dyspnoea [Recovered/Resolved]
  - Abdominal pain [Recovered/Resolved]
